FAERS Safety Report 8395904-1 (Version None)
Quarter: 2012Q2

REPORT INFORMATION
  Report Type: 
  Country: None (occurrence: None)
  Receive Date: 20120530
  Receipt Date: 20120525
  Transmission Date: 20120825
  Serious: Yes (Other)
  Sender: FDA-Public Use
  Company Number: CA-ROCHE-800845

PATIENT
  Sex: Male
  Weight: 72 kg

DRUGS (1)
  1. AVASTIN [Suspect]
     Indication: GLIOBLASTOMA
     Route: 042

REACTIONS (5)
  - DISEASE PROGRESSION [None]
  - TUMOUR NECROSIS [None]
  - NEOPLASM [None]
  - PLICATED TONGUE [None]
  - HEMIPARESIS [None]
